FAERS Safety Report 18935011 (Version 1)
Quarter: 2021Q1

REPORT INFORMATION
  Report Type: Spontaneous
  Country: CA (occurrence: CA)
  Receive Date: 20210224
  Receipt Date: 20210224
  Transmission Date: 20210420
  Serious: Yes (Other)
  Sender: FDA-Public Use
  Company Number: CA-JNJFOC-20210234410

PATIENT
  Age: 61 Year
  Sex: Female
  Weight: 120 kg

DRUGS (1)
  1. REMICADE [Suspect]
     Active Substance: INFLIXIMAB
     Indication: NEUROSARCOIDOSIS
     Route: 042

REACTIONS (7)
  - Nodule [Unknown]
  - Off label use [Unknown]
  - Condition aggravated [Unknown]
  - Weight increased [Unknown]
  - Intentional product use issue [Unknown]
  - Blood pressure increased [Unknown]
  - Product use in unapproved indication [Unknown]
